FAERS Safety Report 23620836 (Version 1)
Quarter: 2024Q1

REPORT INFORMATION
  Report Type: Spontaneous
  Country: US (occurrence: US)
  Receive Date: 20240312
  Receipt Date: 20240312
  Transmission Date: 20240409
  Serious: Yes (Hospitalization)
  Sender: FDA-Public Use
  Company Number: US-MACLEODS PHARMA EU LTD-MAC2024046244

PATIENT

DRUGS (1)
  1. SILDENAFIL [Suspect]
     Active Substance: SILDENAFIL
     Indication: Product used for unknown indication
     Dosage: 50 MILLIGRAM (TWO TO THREE TIMES WEEKLY, BEFORE SEXUAL ACTIVITY)
     Route: 065

REACTIONS (2)
  - Thrombosis corpora cavernosa [Recovered/Resolved]
  - Intentional product use issue [Unknown]
